FAERS Safety Report 16995644 (Version 2)
Quarter: 2019Q4

REPORT INFORMATION
  Report Type: Spontaneous
  Country: JP (occurrence: JP)
  Receive Date: 20191105
  Receipt Date: 20191118
  Transmission Date: 20200122
  Serious: Yes (Death, Hospitalization, Other)
  Sender: FDA-Public Use
  Company Number: JP-009507513-1812JPN001792J

PATIENT
  Age: 63 Year
  Sex: Male
  Weight: 44 kg

DRUGS (5)
  1. LOXOPROFEN NA [Concomitant]
     Active Substance: LOXOPROFEN SODIUM
     Indication: CANCER PAIN
     Dosage: 60 MILLIGRAM, TID
     Route: 048
     Dates: start: 20180222, end: 20181212
  2. KEYTRUDA [Suspect]
     Active Substance: PEMBROLIZUMAB
     Indication: NON-SMALL CELL LUNG CANCER
     Dosage: 200 MILLIGRAM, Q3W
     Route: 041
     Dates: start: 20180417, end: 20180417
  3. ONETRAM [Concomitant]
     Active Substance: TRAMADOL HYDROCHLORIDE
     Indication: CANCER PAIN
     Dosage: 200 MILLIGRAM, QD
     Route: 048
     Dates: start: 20180315, end: 20180726
  4. CALONAL [Concomitant]
     Active Substance: ACETAMINOPHEN
     Indication: CANCER PAIN
     Dosage: 500 MILLIGRAM, TID
     Route: 048
     Dates: start: 20171117, end: 20181212
  5. LANSOPRAZOLE. [Concomitant]
     Active Substance: LANSOPRAZOLE
     Indication: PROPHYLAXIS
     Dosage: 15 MILLIGRAM, QD
     Route: 048
     Dates: start: 20171129

REACTIONS (3)
  - Malignant neoplasm progression [Fatal]
  - Immune-mediated enterocolitis [Recovered/Resolved]
  - Large intestine polyp [Unknown]

NARRATIVE: CASE EVENT DATE: 20180427
